FAERS Safety Report 6896616-3 (Version None)
Quarter: 2010Q3

REPORT INFORMATION
  Report Type: 
  Country: None (occurrence: None)
  Receive Date: 20100802
  Receipt Date: 20070110
  Transmission Date: 20110219
  Serious: No
  Sender: FDA-Public Use
  Company Number: US-PFIZER INC-2007004151

PATIENT
  Sex: Male
  Weight: 68.04 kg

DRUGS (13)
  1. LYRICA [Suspect]
     Indication: BURNING SENSATION
     Dates: start: 20070108
  2. NEURONTIN [Concomitant]
  3. LISINOPRIL [Concomitant]
  4. LIPITOR [Concomitant]
  5. NEXIUM [Concomitant]
  6. WARFARIN SODIUM [Concomitant]
  7. IRON [Concomitant]
  8. TAMSULOSIN HYDROCHLORIDE [Concomitant]
  9. FUROSEMIDE [Concomitant]
  10. TOPROL-XL [Concomitant]
  11. ACETYLSALICYLIC ACID SRT [Concomitant]
  12. POTASSIUM [Concomitant]
  13. FLAVOXATE HYDROCHLORIDE [Concomitant]

REACTIONS (1)
  - TREMOR [None]
